FAERS Safety Report 8058959-X (Version None)
Quarter: 2012Q1

REPORT INFORMATION
  Report Type: 
  Country: None (occurrence: None)
  Receive Date: 20120120
  Receipt Date: 20120118
  Transmission Date: 20120608
  Serious: Yes (Death, Hospitalization)
  Sender: FDA-Public Use
  Company Number: US-ACTELION-A-NJ2011-57839

PATIENT

DRUGS (8)
  1. PROCRIT [Concomitant]
  2. COUMADIN [Concomitant]
  3. OXYGEN [Concomitant]
  4. TRACLEER [Suspect]
     Indication: PULMONARY ARTERIAL HYPERTENSION
     Dosage: UNK
     Route: 048
     Dates: start: 20090825, end: 20120105
  5. SPIRONOLACTONE [Concomitant]
  6. DIGOXIN [Concomitant]
  7. VENTAVIS [Suspect]
     Indication: PULMONARY ARTERIAL HYPERTENSION
     Dosage: UNK
     Route: 055
     Dates: start: 20110125, end: 20120105
  8. LASIX [Concomitant]

REACTIONS (4)
  - HYPOTENSION [None]
  - FALL [None]
  - HIP FRACTURE [None]
  - DEATH [None]
